FAERS Safety Report 6367348-5 (Version None)
Quarter: 2009Q3

REPORT INFORMATION
  Report Type: 
  Country: None (occurrence: None)
  Receive Date: 20090921
  Receipt Date: 20090910
  Transmission Date: 20100115
  Serious: Yes (Hospitalization)
  Sender: FDA-Public Use
  Company Number: US-ROCHE-656237

PATIENT
  Sex: Female
  Weight: 70.3 kg

DRUGS (1)
  1. CAPECITABINE [Suspect]
     Indication: BREAST CANCER
     Route: 048
     Dates: start: 20090511, end: 20090801

REACTIONS (5)
  - DECREASED APPETITE [None]
  - FATIGUE [None]
  - HOSPITALISATION [None]
  - MIGRAINE [None]
  - PYREXIA [None]
